FAERS Safety Report 19569166 (Version 1)
Quarter: 2021Q3

REPORT INFORMATION
  Report Type: Spontaneous
  Country: CN (occurrence: CN)
  Receive Date: 20210714
  Receipt Date: 20210714
  Transmission Date: 20211014
  Serious: Yes (Other)
  Sender: FDA-Public Use
  Company Number: CN-JNJFOC-20210717396

PATIENT
  Sex: Male

DRUGS (1)
  1. SIMPONI [Suspect]
     Active Substance: GOLIMUMAB
     Indication: UVEITIS
     Dosage: 30 MG/TIME OR 40 MG/TIME (THE SPECIFIC DOSE HAD BEEN FORGOTTEN) ONCE A MONTH
     Route: 058

REACTIONS (5)
  - Ocular discomfort [Recovered/Resolved]
  - Pneumonia [Recovered/Resolved]
  - Off label use [Unknown]
  - Nasopharyngitis [Recovered/Resolved]
  - Product use in unapproved indication [Unknown]
